FAERS Safety Report 5948116-2 (Version None)
Quarter: 2008Q4

REPORT INFORMATION
  Report Type: 
  Country: None (occurrence: None)
  Receive Date: 20081111
  Receipt Date: 20081103
  Transmission Date: 20090506
  Serious: Yes (Hospitalization)
  Sender: FDA-Public Use
  Company Number: US-BIOGENIDEC-2008BI023673

PATIENT
  Age: 49 Year
  Sex: Female
  Weight: 75 kg

DRUGS (9)
  1. AVONEX [Suspect]
     Indication: MULTIPLE SCLEROSIS
     Route: 030
     Dates: start: 20051101, end: 20060101
  2. AVONEX [Suspect]
     Route: 030
     Dates: start: 20060101
  3. ABILIFY [Concomitant]
     Indication: DEPRESSION
     Route: 048
  4. LEXAPRO [Concomitant]
     Indication: DEPRESSION
     Route: 048
  5. SYNTHROID [Concomitant]
     Indication: THYROID DISORDER
     Route: 048
  6. KLONOPIN [Concomitant]
     Indication: TREMOR
     Route: 048
  7. SYMMETREL [Concomitant]
     Indication: TREMOR
     Route: 048
  8. BACLOFEN [Concomitant]
     Indication: MUSCLE SPASMS
     Route: 048
  9. TRAZODONE HCL [Concomitant]
     Indication: INSOMNIA
     Route: 048

REACTIONS (4)
  - BACK PAIN [None]
  - INFLUENZA LIKE ILLNESS [None]
  - UTERINE LEIOMYOMA [None]
  - WEIGHT INCREASED [None]
